FAERS Safety Report 7021223-1 (Version None)
Quarter: 2010Q4

REPORT INFORMATION
  Report Type: 
  Country: None (occurrence: None)
  Receive Date: 20100927
  Receipt Date: 20100916
  Transmission Date: 20110411
  Serious: Yes (Hospitalization)
  Sender: FDA-Public Use
  Company Number: 018879

PATIENT
  Sex: Female

DRUGS (9)
  1. NEUPRO [Suspect]
     Dosage: 1 DF, 2 MG/24 H TRANSDERMAL
     Route: 062
     Dates: start: 20100802, end: 20100910
  2. MODURETIC 5-50 [Suspect]
     Indication: HYPERTENSION
     Dosage: 5 DF, 2.5 MG + 25 MG ORAL
     Route: 048
     Dates: start: 20100617, end: 20100910
  3. MINIAS [Suspect]
     Dosage: 2.5 MG/ML; 15 DROPS DAILY ORAL
     Route: 048
     Dates: start: 20100802, end: 20100910
  4. ASPIRIN [Suspect]
     Dosage: 1 DF, 100 MG ORAL
     Route: 048
     Dates: start: 20100617, end: 20100910
  5. MADOPAR [Concomitant]
  6. REQUIP [Concomitant]
  7. SINEMET [Concomitant]
  8. AMANTADINE HCL [Concomitant]
  9. LASIX [Concomitant]

REACTIONS (10)
  - BLOOD CREATININE INCREASED [None]
  - CEREBRAL HAEMORRHAGE TRAUMATIC [None]
  - CONFUSIONAL STATE [None]
  - DYSARTHRIA [None]
  - FALL [None]
  - GAIT DISTURBANCE [None]
  - HALLUCINATION [None]
  - HYPERKALAEMIA [None]
  - IATROGENIC INJURY [None]
  - SUBARACHNOID HAEMORRHAGE [None]
